FAERS Safety Report 8493167-X (Version None)
Quarter: 2012Q3

REPORT INFORMATION
  Report Type: 
  Country: None (occurrence: None)
  Receive Date: 20120706
  Receipt Date: 20120628
  Transmission Date: 20120928
  Serious: Yes (Death)
  Sender: FDA-Public Use
  Company Number: US-JNJFOC-20120700758

PATIENT
  Age: 31 Year
  Sex: Male
  Weight: 67.13 kg

DRUGS (2)
  1. BENADRYL [Suspect]
     Indication: PRODUCT USED FOR UNKNOWN INDICATION
     Route: 048
  2. PRESCRIPTION PAIN MEDICATIONS [Concomitant]
     Indication: ROAD TRAFFIC ACCIDENT
     Route: 065

REACTIONS (3)
  - DEPRESSED LEVEL OF CONSCIOUSNESS [None]
  - ASPHYXIA [None]
  - OVERDOSE [None]
